FAERS Safety Report 11799637 (Version 3)
Quarter: 2016Q4

REPORT INFORMATION
  Report Type: Spontaneous
  Country: US (occurrence: US)
  Receive Date: 20151203
  Receipt Date: 20161214
  Transmission Date: 20170206
  Serious: Yes (Other)
  Sender: FDA-Public Use
  Company Number: US-EISAI MEDICAL RESEARCH-EC-2015-012505

PATIENT
  Age: 49 Year
  Sex: Female

DRUGS (9)
  1. PHENOXYBENZAMINE [Concomitant]
     Active Substance: PHENOXYBENZAMINE
     Indication: HYPERTENSION
     Dosage: UNKNOWN
     Dates: start: 201507, end: 201507
  2. ATENOLOL. [Concomitant]
     Active Substance: ATENOLOL
     Dosage: TITRATED
     Dates: start: 201507
  3. LENVIMA [Suspect]
     Active Substance: LENVATINIB
     Route: 048
     Dates: start: 2015
  4. ATENOLOL. [Concomitant]
     Active Substance: ATENOLOL
     Indication: HYPERTENSION
     Dosage: UNKNOWN
     Dates: start: 201507, end: 201507
  5. PHENOXYBENZAMINE [Concomitant]
     Active Substance: PHENOXYBENZAMINE
     Dosage: TITRATED
     Dates: start: 201507
  6. CALCIUM CHANNEL BLOCKERS [Concomitant]
     Active Substance: UNSPECIFIED INGREDIENT
     Indication: HYPERTENSION
     Dosage: UNKNOWN
     Dates: start: 201507, end: 201507
  7. CALCIUM CHANNEL BLOCKERS [Concomitant]
     Active Substance: UNSPECIFIED INGREDIENT
     Dosage: TITRATED
     Dates: start: 201507
  8. LENVIMA [Suspect]
     Active Substance: LENVATINIB
     Indication: PARAGANGLION NEOPLASM MALIGNANT
     Route: 048
     Dates: start: 201507, end: 201507
  9. LENVIMA [Suspect]
     Active Substance: LENVATINIB
     Route: 048
     Dates: start: 201507, end: 2015

REACTIONS (5)
  - Fatigue [Unknown]
  - Pyrexia [Recovered/Resolved]
  - Blood pressure increased [Recovered/Resolved]
  - Tumour lysis syndrome [Unknown]
  - Radiation pneumonitis [Recovered/Resolved]

NARRATIVE: CASE EVENT DATE: 2015
